FAERS Safety Report 12310206 (Version 2)
Quarter: 2017Q1

REPORT INFORMATION
  Report Type: Report from Study
  Country: FR (occurrence: FR)
  Receive Date: 20160427
  Receipt Date: 20170110
  Transmission Date: 20170428
  Serious: Yes (Other)
  Sender: FDA-Public Use
  Company Number: FR-ROCHE-1747920

PATIENT
  Age: 11 Year
  Sex: Male

DRUGS (12)
  1. SOMATROPIN [Suspect]
     Active Substance: SOMATROPIN
     Route: 058
     Dates: start: 201108, end: 201212
  2. SOMATROPIN [Suspect]
     Active Substance: SOMATROPIN
     Indication: GROWTH RETARDATION
     Dosage: 10 MG/2ML
     Route: 058
     Dates: start: 20100315
  3. SOMATROPIN [Suspect]
     Active Substance: SOMATROPIN
     Indication: FAILURE TO THRIVE
     Route: 058
     Dates: start: 201006, end: 201011
  4. ZYMAD [Concomitant]
     Active Substance: CHOLECALCIFEROL
     Route: 048
  5. SOMATROPIN [Suspect]
     Active Substance: SOMATROPIN
     Route: 058
     Dates: start: 201212, end: 201303
  6. DECAPEPTYL [Concomitant]
     Active Substance: TRIPTORELIN
     Route: 030
  7. SOMATROPIN [Suspect]
     Active Substance: SOMATROPIN
     Route: 058
     Dates: start: 201011, end: 201108
  8. SOMATROPIN [Suspect]
     Active Substance: SOMATROPIN
     Route: 058
     Dates: start: 201303, end: 201405
  9. SOMATROPIN [Suspect]
     Active Substance: SOMATROPIN
     Route: 058
     Dates: start: 201503
  10. ERYTHROGEL [Concomitant]
     Route: 061
  11. SOMATROPIN [Suspect]
     Active Substance: SOMATROPIN
     Route: 058
     Dates: start: 201405, end: 201503
  12. HEXOMEDINE (FRANCE) [Concomitant]
     Route: 061

REACTIONS (3)
  - Off label use [Unknown]
  - Osteochondrosis [Not Recovered/Not Resolved]
  - Insulin-like growth factor increased [Not Recovered/Not Resolved]

NARRATIVE: CASE EVENT DATE: 20100929
